FAERS Safety Report 5454844-8 (Version None)
Quarter: 2007Q3

REPORT INFORMATION
  Report Type: 
  Country: None (occurrence: None)
  Receive Date: 20070917
  Receipt Date: 20061207
  Transmission Date: 20080115
  Serious: No
  Sender: FDA-Public Use
  Company Number: US-ASTRAZENECA-2006UW19615

PATIENT
  Age: 34 Year
  Sex: Female

DRUGS (4)
  1. SEROQUEL [Suspect]
     Route: 048
  2. CLONAZEPAM [Concomitant]
  3. CELEXA [Concomitant]
  4. AMBIEN [Concomitant]

REACTIONS (2)
  - DIZZINESS [None]
  - DRUG EXPOSURE DURING PREGNANCY [None]
